FAERS Safety Report 19818094 (Version 1)
Quarter: 2021Q3

REPORT INFORMATION
  Report Type: Spontaneous
  Country: IN (occurrence: IN)
  Receive Date: 20210911
  Receipt Date: 20210911
  Transmission Date: 20211014
  Serious: Yes (Hospitalization, Other)
  Sender: FDA-Public Use
  Company Number: IN-EPICPHARMA-IN-2021EPCLIT00975

PATIENT
  Age: 60 Year
  Sex: Female

DRUGS (8)
  1. INSULIN [Interacting]
     Active Substance: INSULIN NOS
     Indication: BRASH SYNDROME
     Route: 065
  2. ATENOLOL. [Suspect]
     Active Substance: ATENOLOL
     Indication: HYPERTENSION
     Route: 065
  3. ATROPINE. [Interacting]
     Active Substance: ATROPINE
     Indication: SUPPORTIVE CARE
     Route: 065
  4. AMLODIPINE BESYLATE. [Suspect]
     Active Substance: AMLODIPINE BESYLATE
     Indication: HYPERTENSION
     Route: 065
  5. ISOPRENALINE [Interacting]
     Active Substance: ISOPROTERENOL HYDROCHLORIDE
     Indication: BRADYCARDIA
     Route: 065
  6. CALCIUM GLUCONATE. [Interacting]
     Active Substance: CALCIUM GLUCONATE
     Indication: BRASH SYNDROME
     Route: 065
  7. BICARBONATE [Interacting]
     Active Substance: SODIUM BICARBONATE
     Indication: BRASH SYNDROME
     Route: 065
  8. SALBUTAMOL [Interacting]
     Active Substance: ALBUTEROL
     Indication: BRASH SYNDROME
     Route: 065

REACTIONS (1)
  - BRASH syndrome [Recovered/Resolved]
